FAERS Safety Report 12750522 (Version 1)
Quarter: 2016Q3

REPORT INFORMATION
  Report Type: Spontaneous
  Country: US (occurrence: US)
  Receive Date: 20160915
  Receipt Date: 20160915
  Transmission Date: 20161109
  Serious: Yes (Other)
  Sender: FDA-Public Use
  Company Number: US-ASTELLAS-2016US000326

PATIENT
  Age: 65 Year
  Sex: Male

DRUGS (2)
  1. XTANDI [Suspect]
     Active Substance: ENZALUTAMIDE
     Indication: PROSTATE CANCER
     Route: 048
     Dates: start: 20150903, end: 20160422
  2. XTANDI [Suspect]
     Active Substance: ENZALUTAMIDE
     Indication: PROSTATE CANCER METASTATIC
     Route: 048
     Dates: start: 201508

REACTIONS (22)
  - Malignant neoplasm progression [Unknown]
  - Hypoacusis [Unknown]
  - Arthralgia [Unknown]
  - Vision blurred [Unknown]
  - Vision blurred [Unknown]
  - Pain in extremity [Unknown]
  - Back pain [Unknown]
  - Prostatic specific antigen increased [Unknown]
  - Insomnia [Unknown]
  - Paraesthesia [Unknown]
  - Drug ineffective [Unknown]
  - Alopecia [Unknown]
  - Hot flush [Recovered/Resolved]
  - Ageusia [Unknown]
  - Vision blurred [Unknown]
  - Pain [Unknown]
  - Bone pain [Unknown]
  - Sleep disorder [Unknown]
  - Paraesthesia [Unknown]
  - Pain in extremity [Unknown]
  - Discomfort [Unknown]
  - Back pain [Unknown]

NARRATIVE: CASE EVENT DATE: 201601
